FAERS Safety Report 15425787 (Version 1)
Quarter: 2018Q4

REPORT INFORMATION
  Report Type: Spontaneous
  Country: FR (occurrence: FR)
  Receive Date: 20180925
  Receipt Date: 20180925
  Transmission Date: 20190204
  Serious: Yes (Other)
  Sender: FDA-Public Use
  Company Number: FR-TELIGENT, INC-IGIL20180534

PATIENT
  Age: 50 Year
  Sex: Female
  Weight: 53 kg

DRUGS (13)
  1. RANITIDINE HYDROCHLORIDE. [Suspect]
     Active Substance: RANITIDINE HYDROCHLORIDE
     Indication: CHEMOTHERAPY
     Dosage: 50 MG
     Route: 042
     Dates: start: 20120717, end: 20120717
  2. SOLUPRED (PREDNISOLONE SODIUM METAZOATE) [Suspect]
     Active Substance: PREDNISOLONE SODIUM METAZOATE
     Indication: PREMEDICATION
  3. POLARAMINE [Suspect]
     Active Substance: DEXCHLORPHENIRAMINE MALEATE
     Indication: PREMEDICATION
  4. FARMORUBICINE [Concomitant]
     Active Substance: EPIRUBICIN HYDROCHLORIDE
     Indication: PRODUCT USED FOR UNKNOWN INDICATION
     Dosage: UNKNOWN
     Route: 066
     Dates: start: 20120626, end: 20120626
  5. EMEND [Suspect]
     Active Substance: APREPITANT
     Indication: PREMEDICATION
  6. 5FU [Concomitant]
     Active Substance: FLUOROURACIL
     Indication: PRODUCT USED FOR UNKNOWN INDICATION
     Dosage: UNKNOWN
     Route: 066
     Dates: start: 20120626, end: 20120626
  7. ENDOXAN [Concomitant]
     Active Substance: CYCLOPHOSPHAMIDE
     Indication: PRODUCT USED FOR UNKNOWN INDICATION
     Dosage: UNKNOWN
     Route: 066
     Dates: start: 20120626, end: 20120626
  8. RANITIDINE HYDROCHLORIDE. [Suspect]
     Active Substance: RANITIDINE HYDROCHLORIDE
     Indication: PREMEDICATION
  9. DOCETAXEL. [Suspect]
     Active Substance: DOCETAXEL
     Indication: CHEMOTHERAPY
     Dosage: 160 MG
     Route: 042
     Dates: start: 20120717, end: 20120717
  10. SOLUPRED (PREDNISOLONE SODIUM METAZOATE) [Suspect]
     Active Substance: PREDNISOLONE SODIUM METAZOATE
     Indication: CHEMOTHERAPY
     Dosage: 60 MG
     Route: 048
     Dates: start: 20120716, end: 20120718
  11. DOCETAXEL. [Suspect]
     Active Substance: DOCETAXEL
     Indication: INVASIVE DUCTAL BREAST CARCINOMA
  12. EMEND [Suspect]
     Active Substance: APREPITANT
     Indication: CHEMOTHERAPY
     Dosage: UNKNOWN
     Route: 048
     Dates: start: 20120717, end: 20120719
  13. POLARAMINE [Suspect]
     Active Substance: DEXCHLORPHENIRAMINE MALEATE
     Indication: CHEMOTHERAPY
     Dosage: 5 MG
     Route: 042
     Dates: start: 20120717, end: 20120717

REACTIONS (6)
  - Palmar-plantar erythrodysaesthesia syndrome [Recovered/Resolved]
  - Thermal burn [Recovered/Resolved]
  - Mucosal inflammation [Recovered/Resolved]
  - Skin exfoliation [Recovered/Resolved]
  - Pain [Recovered/Resolved]
  - Oral disorder [Recovered/Resolved]

NARRATIVE: CASE EVENT DATE: 20120719
